FAERS Safety Report 6730426-2 (Version None)
Quarter: 2010Q2

REPORT INFORMATION
  Report Type: 
  Country: None (occurrence: None)
  Receive Date: 20100518
  Receipt Date: 20100507
  Transmission Date: 20101027
  Serious: Yes (Other)
  Sender: FDA-Public Use
  Company Number: B0649017A

PATIENT
  Sex: Male
  Weight: 78 kg

DRUGS (7)
  1. ATRIANCE [Suspect]
     Indication: LYMPHOCYTIC LEUKAEMIA
     Dosage: 1500MGM2 CYCLIC
     Route: 042
     Dates: start: 20091119, end: 20091126
  2. ZOPHREN [Concomitant]
     Indication: VOMITING
     Dosage: 8MG THREE TIMES PER DAY
     Route: 042
     Dates: start: 20091119, end: 20091127
  3. AXEPIM [Concomitant]
     Indication: SEPSIS
     Dosage: 2G TWICE PER DAY
     Route: 042
     Dates: start: 20091119, end: 20091201
  4. VANCOMYCIN HCL [Concomitant]
     Indication: SEPSIS
     Dosage: 2G CONTINUOUS
     Route: 042
     Dates: start: 20091119, end: 20091122
  5. CIFLOX [Concomitant]
     Indication: SEPSIS
     Dosage: 400MG TWICE PER DAY
     Route: 042
     Dates: start: 20091119, end: 20091201
  6. LASIX [Concomitant]
     Indication: FLUID RETENTION
     Dosage: 20MG PER DAY
     Route: 042
     Dates: start: 20091106
  7. HEPARIN [Concomitant]
     Indication: DEEP VEIN THROMBOSIS
     Dosage: 120MG CONTINUOUS
     Route: 042
     Dates: start: 20091026, end: 20091201

REACTIONS (6)
  - BLOOD CREATININE INCREASED [None]
  - CREATININE RENAL CLEARANCE DECREASED [None]
  - DEHYDRATION [None]
  - INFECTION [None]
  - RENAL FAILURE ACUTE [None]
  - RENAL IMPAIRMENT [None]
